FAERS Safety Report 24312788 (Version 1)
Quarter: 2024Q3

REPORT INFORMATION
  Report Type: Spontaneous
  Country: US (occurrence: None)
  Receive Date: 20240911
  Receipt Date: 20240911
  Transmission Date: 20241017
  Serious: Yes (Life-Threatening, Hospitalization, Disabling)
  Sender: Public
  Company Number: None

PATIENT
  Age: 30 Year
  Sex: Male
  Weight: 101.25 kg

DRUGS (1)
  1. EMTRICITABINE AND TENOFOVIR DISOPROXIL FUMARATE [Suspect]
     Active Substance: EMTRICITABINE\TENOFOVIR DISOPROXIL FUMARATE
     Dosage: OTHER QUANTITY : 1 TABLET(S);?OTHER FREQUENCY : 2-1-1;?
     Route: 048
     Dates: start: 20240822, end: 20240823

REACTIONS (2)
  - Myasthenia gravis [None]
  - Paraesthesia oral [None]

NARRATIVE: CASE EVENT DATE: 20240823
